FAERS Safety Report 6741767-7 (Version None)
Quarter: 2010Q2

REPORT INFORMATION
  Report Type: 
  Country: None (occurrence: None)
  Receive Date: 20100526
  Receipt Date: 20100519
  Transmission Date: 20101027
  Serious: Yes (Death)
  Sender: FDA-Public Use
  Company Number: US-ROCHE-697036

PATIENT
  Sex: Female

DRUGS (1)
  1. XELODA [Suspect]
     Indication: BREAST CANCER
     Dosage: FREQUENCY: EVERY 12 HOURS FOR 14 DAYS
     Route: 048
     Dates: start: 20100316, end: 20100329

REACTIONS (1)
  - DEATH [None]
